FAERS Safety Report 8697585 (Version 2)
Quarter: 2012Q4

REPORT INFORMATION
  Report Type: 
  Country: US (occurrence: US)
  Receive Date: 20120801
  Receipt Date: 20121108
  Transmission Date: 20130627
  Serious: Yes (Death, Hospitalization)
  Sender: FDA-Public Use
  Company Number: PHHY2012US065074

PATIENT
  Age: 51 Year
  Sex: Female

DRUGS (2)
  1. CLONAZEPAM [Suspect]
  2. CARISOPRODOL [Suspect]

REACTIONS (19)
  - Death [Fatal]
  - Urinary bladder rupture [Unknown]
  - Urinary bladder haemorrhage [Unknown]
  - General physical health deterioration [Unknown]
  - Bronchopneumonia [Unknown]
  - Pneumonitis [Unknown]
  - Pulmonary oedema [Unknown]
  - Tachypnoea [Unknown]
  - Pulmonary congestion [Unknown]
  - Hepatic fibrosis [Unknown]
  - Pain [Unknown]
  - Hepatomegaly [Unknown]
  - Toxicity to various agents [Unknown]
  - Depressed level of consciousness [Unknown]
  - Unresponsive to stimuli [Unknown]
  - Hyperhidrosis [Unknown]
  - Pyrexia [Unknown]
  - Pulse pressure decreased [Unknown]
  - Intentional overdose [Unknown]
